FAERS Safety Report 13652118 (Version 1)
Quarter: 2017Q2

REPORT INFORMATION
  Report Type: Report from Study
  Country: DE (occurrence: DE)
  Receive Date: 20170614
  Receipt Date: 20170614
  Transmission Date: 20170830
  Serious: Yes (Hospitalization)
  Sender: FDA-Public Use
  Company Number: DE-AMGEN-DEUCT2014010272

PATIENT
  Age: 56 Year
  Sex: Female
  Weight: 64.6 kg

DRUGS (6)
  1. TORASEMIDE [Concomitant]
     Active Substance: TORSEMIDE
     Dosage: 5 - 10 MG, UNK
     Route: 048
     Dates: start: 20130831, end: 20140211
  2. AMG 386 [Suspect]
     Active Substance: TREBANANIB
     Indication: OVARIAN CANCER
     Dosage: UNK
     Route: 065
     Dates: start: 20130118, end: 20140124
  3. PANTOPRAZOLE SODIUM SESQUIHYDRATE [Concomitant]
     Active Substance: PANTOPRAZOLE SODIUM
     Dosage: 40 MG, UNK
     Route: 048
     Dates: start: 20130405
  4. METOCLOPRAMIDE. [Concomitant]
     Active Substance: METOCLOPRAMIDE
     Dosage: 20 GTT, UNK
     Route: 048
     Dates: start: 20130605, end: 20140209
  5. MOVICOL [Concomitant]
     Active Substance: POLYETHYLENE GLYCOL 3350\POTASSIUM CHLORIDE\SODIUM BICARBONATE\SODIUM CHLORIDE
     Dosage: 1 UNK, UNK
     Route: 048
     Dates: start: 20131025, end: 20140210
  6. L-THYROXIN [Concomitant]
     Active Substance: LEVOTHYROXINE SODIUM
     Dosage: 100 MUG, UNK
     Route: 048
     Dates: start: 20131018

REACTIONS (2)
  - Generalised oedema [Recovered/Resolved]
  - Subileus [Not Recovered/Not Resolved]

NARRATIVE: CASE EVENT DATE: 20140210
